FAERS Safety Report 16400386 (Version 1)
Quarter: 2019Q2

REPORT INFORMATION
  Report Type: Spontaneous
  Country: US (occurrence: US)
  Receive Date: 20190606
  Receipt Date: 20190606
  Transmission Date: 20190711
  Serious: No
  Sender: FDA-Public Use
  Company Number: US-BAUSCH-BL-2019-015817

PATIENT
  Age: 59 Year
  Sex: Male

DRUGS (3)
  1. BRIMONIDINE TARTRATE. [Suspect]
     Active Substance: BRIMONIDINE TARTRATE
     Indication: POSTOPERATIVE CARE
     Dosage: 1 DROP IN RIGHT EYE
     Route: 047
     Dates: start: 20190525
  2. DORZOLAMIDE/TIMOLOL [Suspect]
     Active Substance: DORZOLAMIDE\TIMOLOL
     Indication: PRODUCT USED FOR UNKNOWN INDICATION
     Route: 047
     Dates: start: 20190525
  3. BRIMONIDINE TARTRATE. [Suspect]
     Active Substance: BRIMONIDINE TARTRATE
     Indication: PRODUCT USE IN UNAPPROVED INDICATION

REACTIONS (2)
  - Product use in unapproved indication [Unknown]
  - Instillation site pain [Recovered/Resolved]

NARRATIVE: CASE EVENT DATE: 201905
